FAERS Safety Report 8540035-0 (Version None)
Quarter: 2012Q2

REPORT INFORMATION
  Report Type: 
  Country: None (occurrence: None)
  Receive Date: 20120416
  Receipt Date: 20080221
  Transmission Date: 20120825
  Serious: Yes (Other)
  Sender: FDA-Public Use
  Company Number: PHEH2008US02141

PATIENT
  Age: 78 Year
  Sex: Female

DRUGS (10)
  1. LORAZEPAM [Suspect]
  2. ALTACE [Suspect]
  3. ATARAX [Suspect]
  4. ALTACE [Suspect]
  5. DIOVAN [Suspect]
     Dates: start: 20071101, end: 20080101
  6. COREG [Suspect]
     Indication: HYPERTENSION
     Dosage: 3.125, BID
     Dates: start: 20070925, end: 20071211
  7. VITAMIN B COMPLEX (CALCIUM PANTOTHENATE, NICOTINAMIDE, PYRIDOXINE HYDR [Suspect]
  8. INSULIN [Suspect]
  9. ACETAMINOPHEN [Suspect]
  10. ASPIRIN [Suspect]

REACTIONS (7)
  - CONVULSION [None]
  - SYNCOPE [None]
  - BLOOD GLUCOSE INCREASED [None]
  - RASH [None]
  - DRUG HYPERSENSITIVITY [None]
  - DIZZINESS [None]
  - FEELING ABNORMAL [None]
